FAERS Safety Report 23885280 (Version 2)
Quarter: 2024Q2

REPORT INFORMATION
  Report Type: Spontaneous
  Country: FR (occurrence: FR)
  Receive Date: 20240522
  Receipt Date: 20240529
  Transmission Date: 20240716
  Serious: Yes (Hospitalization, Other)
  Sender: FDA-Public Use
  Company Number: FR-MYLANLABS-2024M1045462

PATIENT
  Age: 70 Year
  Sex: Male

DRUGS (5)
  1. NEURONTIN [Suspect]
     Active Substance: GABAPENTIN
     Indication: Testicular pain
     Dosage: 3300 MILLIGRAM, QD (DIVIDED IN THREE INTAKES OF 1100 MG (WITH 300 MG AND 800 MG DOSAGES)
     Route: 065
     Dates: start: 2022, end: 202401
  2. NEURONTIN [Suspect]
     Active Substance: GABAPENTIN
     Indication: Lymphoma
     Dosage: 800 MILLIGRAM, TID (3 TIMES A DAY (MORNING, AT NOON, EVENING)
     Route: 048
     Dates: start: 202401
  3. NEURONTIN [Suspect]
     Active Substance: GABAPENTIN
     Indication: Orchidectomy
     Dosage: 600 MILLIGRAM, TID (3 TIMES A DAY)
     Route: 065
     Dates: start: 202403
  4. NEURONTIN [Suspect]
     Active Substance: GABAPENTIN
     Indication: Radiotherapy
     Dosage: 300 MILLIGRAM, AM
     Route: 048
     Dates: start: 20240406, end: 20240408
  5. NEURONTIN [Suspect]
     Active Substance: GABAPENTIN
     Dosage: 700 MILLIGRAM, TID 3 TIMES A DAY (MORNING, NOON, EVENING)
     Route: 065
     Dates: start: 202402, end: 20240408

REACTIONS (6)
  - Suicidal ideation [Not Recovered/Not Resolved]
  - Feeling abnormal [Unknown]
  - Negative thoughts [Not Recovered/Not Resolved]
  - Electric shock sensation [Unknown]
  - Off label use [Unknown]
  - Intentional product use issue [Unknown]

NARRATIVE: CASE EVENT DATE: 20240101
